FAERS Safety Report 7051567-9 (Version None)
Quarter: 2010Q4

REPORT INFORMATION
  Report Type: 
  Country: None (occurrence: None)
  Receive Date: 20101019
  Receipt Date: 20101004
  Transmission Date: 20110411
  Serious: Yes (Congenital Anomaly, Other)
  Sender: FDA-Public Use
  Company Number: ES-ROCHE-578601

PATIENT

DRUGS (1)
  1. PYRIMETHAMINE/SULFADOXINE [Suspect]
     Indication: MALARIA PROPHYLAXIS
     Dosage: (3 TAB) 1500 MG SULFADOXINE,75 MG PYRIMETHAMINE, TWICE FROM 2ND TRIMESTER, AT LEAST 1 MONTH APART
     Route: 064

REACTIONS (6)
  - ANAEMIA [None]
  - MALARIA [None]
  - PLASMODIUM FALCIPARUM INFECTION [None]
  - SMALL FOR DATES BABY [None]
  - SPINA BIFIDA [None]
  - STILLBIRTH [None]
